FAERS Safety Report 8896251 (Version 1)
Quarter: 2012Q4

REPORT INFORMATION
  Report Type: Spontaneous
  Country: US (occurrence: None)
  Receive Date: 20121106
  Receipt Date: 20121106
  Transmission Date: 20130627
  Serious: Yes (Life-Threatening, Hospitalization, Disabling)
  Sender: FDA-Public Use
  Company Number: None

PATIENT
  Age: 62 Year
  Sex: Male
  Weight: 97.98 kg

DRUGS (4)
  1. HEPARIN [Suspect]
     Indication: CABG
     Dates: start: 20120910, end: 20120910
  2. HEPARIN [Suspect]
     Indication: THROMBOSIS PROPHYLAXIS
     Dates: start: 20120910, end: 20120910
  3. HEPARIN [Suspect]
     Indication: CABG
     Dates: start: 20120921, end: 20120924
  4. HEPARIN [Suspect]
     Indication: THROMBOSIS PROPHYLAXIS
     Dates: start: 20120921, end: 20120924

REACTIONS (3)
  - Thrombosis [None]
  - Renal failure chronic [None]
  - Heparin-induced thrombocytopenia [None]
